FAERS Safety Report 12214292 (Version 1)
Quarter: 2016Q1

REPORT INFORMATION
  Report Type: Report from Study
  Country: CA (occurrence: CA)
  Receive Date: 20160328
  Receipt Date: 20160328
  Transmission Date: 20160526
  Serious: Yes (Hospitalization, Other)
  Sender: FDA-Public Use
  Company Number: CA-AMGEN-CANSL2016036974

PATIENT
  Age: 71 Year
  Sex: Female
  Weight: 59.2 kg

DRUGS (1)
  1. ARANESP [Suspect]
     Active Substance: DARBEPOETIN ALFA
     Indication: ANAEMIA
     Dosage: 20 MUG, Q2WK
     Route: 058
     Dates: start: 20160304

REACTIONS (7)
  - Chills [Recovered/Resolved]
  - Malaise [Unknown]
  - Feeling of body temperature change [Unknown]
  - Fatigue [Unknown]
  - Asthenia [Unknown]
  - Transfusion [Unknown]
  - Hospitalisation [Unknown]

NARRATIVE: CASE EVENT DATE: 20160304
